FAERS Safety Report 14812346 (Version 1)
Quarter: 2018Q2

REPORT INFORMATION
  Report Type: Spontaneous
  Country: US (occurrence: US)
  Receive Date: 20180425
  Receipt Date: 20180425
  Transmission Date: 20180711
  Serious: No
  Sender: FDA-Public Use
  Company Number: US-AMGEN-USASP2018044609

PATIENT
  Sex: Male

DRUGS (5)
  1. FLUOCINONIDE. [Concomitant]
     Active Substance: FLUOCINONIDE
     Dosage: (0.05%)
  2. REPATHA [Suspect]
     Active Substance: EVOLOCUMAB
     Indication: CORONARY ANGIOPLASTY
     Dosage: 140 MG, Q2WK
     Route: 058
  3. LIVALO [Concomitant]
     Active Substance: PITAVASTATIN CALCIUM
     Dosage: 2 MG, UNK
  4. LISINOPRIL. [Concomitant]
     Active Substance: LISINOPRIL
     Dosage: 2.5 MG, UNK
  5. REPATHA [Suspect]
     Active Substance: EVOLOCUMAB
     Dosage: UNK, QMO
     Route: 058

REACTIONS (1)
  - Diarrhoea [Unknown]
